FAERS Safety Report 10744753 (Version 1)
Quarter: 2015Q1

REPORT INFORMATION
  Report Type: Spontaneous
  Country: US (occurrence: None)
  Receive Date: 20150126
  Receipt Date: 20150126
  Transmission Date: 20150721
  Serious: Yes (Hospitalization)
  Sender: FDA-Public Use
  Company Number: None

PATIENT
  Age: 6 Year
  Sex: Male
  Weight: 18.14 kg

DRUGS (1)
  1. TAMIFLU [Suspect]
     Active Substance: OSELTAMIVIR PHOSPHATE
     Indication: INFLUENZA
     Dates: start: 20141222, end: 20141223

REACTIONS (6)
  - Asthenia [None]
  - Hallucination [None]
  - Encephalopathy [None]
  - Hyperreflexia [None]
  - Seizure [None]
  - PCO2 increased [None]

NARRATIVE: CASE EVENT DATE: 20141223
